FAERS Safety Report 8063963 (Version 10)
Quarter: 2013Q4

REPORT INFORMATION
  Report Type: Spontaneous
  Country: AR (occurrence: AR)
  Receive Date: 20110802
  Receipt Date: 20131004
  Transmission Date: 20140711
  Serious: Yes (Hospitalization)
  Sender: FDA-Public Use
  Company Number: AR-BIOGENIDEC-2011BI027764

PATIENT
  Age: 47 Year
  Sex: Female

DRUGS (8)
  1. AVONEX [Suspect]
     Indication: MULTIPLE SCLEROSIS
     Route: 030
     Dates: start: 2005, end: 201201
  2. AVONEX [Suspect]
     Indication: MULTIPLE SCLEROSIS
     Route: 030
     Dates: start: 201205, end: 20130528
  3. AVONEX [Suspect]
     Indication: MULTIPLE SCLEROSIS
     Route: 030
     Dates: start: 201307
  4. DICLOFENAC [Concomitant]
     Indication: HEADACHE
  5. ZOLPIDEM (SOMIT) [Concomitant]
  6. ALPRAZOLAM (ALPLAX) [Concomitant]
  7. PHENYTOIN [Concomitant]
     Dates: start: 201201
  8. CLONAZEPAM [Concomitant]

REACTIONS (8)
  - Meningioma [Not Recovered/Not Resolved]
  - Depression [Unknown]
  - Urinary tract infection [Unknown]
  - Frontal lobe epilepsy [Recovered/Resolved]
  - Epilepsy [Recovered/Resolved]
  - Convulsion [Recovered/Resolved]
  - Procedural haemorrhage [Unknown]
  - Migraine [Unknown]
